FAERS Safety Report 25587397 (Version 2)
Quarter: 2025Q3

REPORT INFORMATION
  Report Type: Spontaneous
  Country: US (occurrence: US)
  Receive Date: 20250721
  Receipt Date: 20250724
  Transmission Date: 20251021
  Serious: Yes (Hospitalization, Other)
  Sender: MERCK SHARP & DOHME LLC
  Company Number: US-009507513-2310756

PATIENT
  Age: 70 Year
  Sex: Female
  Weight: 69 kg

DRUGS (17)
  1. KEYTRUDA [Suspect]
     Active Substance: PEMBROLIZUMAB
     Indication: Lung carcinoma cell type unspecified stage IV
     Route: 065
  2. CARBOPLATIN [Suspect]
     Active Substance: CARBOPLATIN
     Indication: Lung carcinoma cell type unspecified stage IV
     Route: 065
  3. ALIMTA [Suspect]
     Active Substance: PEMETREXED DISODIUM
     Indication: Lung carcinoma cell type unspecified stage IV
  4. METOPROLOL SUCCINATE [Concomitant]
     Active Substance: METOPROLOL SUCCINATE
     Route: 048
  5. LASIX [Concomitant]
     Active Substance: FUROSEMIDE
     Route: 048
     Dates: start: 20250513
  6. folie acid (FOLVITE) [Concomitant]
     Route: 048
     Dates: start: 20250527
  7. DECADRON [Concomitant]
     Active Substance: DEXAMETHASONE
     Route: 048
     Dates: start: 20250527
  8. MAGNESIUM OXIDE [Concomitant]
     Active Substance: MAGNESIUM OXIDE
     Route: 048
     Dates: start: 20250415
  9. insulin lispro, Human, (ADMELOG SOLOSTAR U-100 INSULIN LISPRO) [Concomitant]
     Route: 058
     Dates: start: 20240411
  10. ZYRTEC [Concomitant]
     Active Substance: CETIRIZINE HYDROCHLORIDE
     Route: 048
     Dates: start: 20250314
  11. insulin GLARGINE (BASAGLAR KWIKPEN U-100 INSULIN) [Concomitant]
     Dosage: 100 UNIT/ML (3 ML)
     Route: 058
     Dates: start: 20250127
  12. SYNTHROID [Concomitant]
     Active Substance: LEVOTHYROXINE SODIUM
     Route: 048
     Dates: start: 20250123
  13. LIPITOR [Concomitant]
     Active Substance: ATORVASTATIN CALCIUM
     Route: 048
     Dates: start: 20250123
  14. ondansetron (ZOFRAN-ODT) [Concomitant]
     Indication: Nausea
     Route: 048
     Dates: start: 20231114
  15. OMEPRAZOLE [Concomitant]
     Active Substance: OMEPRAZOLE
     Dates: start: 20221111
  16. proCHLORPERazlne (COMPAZINE) [Concomitant]
     Indication: Nausea
     Route: 048
     Dates: start: 20221220
  17. NEURONTIN [Concomitant]
     Active Substance: GABAPENTIN
     Route: 050
     Dates: start: 20250123

REACTIONS (12)
  - Compression fracture [Unknown]
  - Fatigue [Unknown]
  - Abdominal pain upper [Unknown]
  - Dyspnoea [Unknown]
  - Atrial fibrillation [Unknown]
  - Spinal osteoarthritis [Unknown]
  - Haemangioma [Unknown]
  - Spinal fracture [Unknown]
  - Osteoporosis [Unknown]
  - Chest pain [Unknown]
  - Cough [Unknown]
  - Spondylolisthesis [Unknown]

NARRATIVE: CASE EVENT DATE: 20250601
